FAERS Safety Report 6464490-5 (Version None)
Quarter: 2009Q4

REPORT INFORMATION
  Report Type: 
  Country: None (occurrence: None)
  Receive Date: 20091124
  Receipt Date: 20091116
  Transmission Date: 20100525
  Serious: Yes (Death, Hospitalization)
  Sender: FDA-Public Use
  Company Number: 2009AC000052

PATIENT
  Age: 59 Year
  Sex: Male

DRUGS (4)
  1. DIGOXIN [Suspect]
     Dosage: 0.125 MG;PO
     Route: 048
     Dates: start: 20051209
  2. COUMADIN [Concomitant]
  3. SPIRIVA [Concomitant]
  4. ASTELIN [Concomitant]

REACTIONS (22)
  - AORTIC ARTERIOSCLEROSIS [None]
  - ARRHYTHMIA [None]
  - ATELECTASIS [None]
  - ATRIAL FIBRILLATION [None]
  - CARDIOMEGALY [None]
  - CYANOSIS [None]
  - ECONOMIC PROBLEM [None]
  - EMPHYSEMA [None]
  - HYPOTENSION [None]
  - INTERMITTENT CLAUDICATION [None]
  - LERICHE SYNDROME [None]
  - MITRAL VALVE PROLAPSE [None]
  - MULTIPLE INJURIES [None]
  - PALLOR [None]
  - PERIPHERAL VASCULAR DISORDER [None]
  - PLEURAL EFFUSION [None]
  - PNEUMOCONIOSIS [None]
  - PULMONARY CONGESTION [None]
  - SURGERY [None]
  - UNEVALUABLE EVENT [None]
  - UNRESPONSIVE TO STIMULI [None]
  - VISCERAL CONGESTION [None]
